FAERS Safety Report 24461387 (Version 1)
Quarter: 2024Q4

REPORT INFORMATION
  Report Type: Report from Study
  Country: US (occurrence: US)
  Receive Date: 20241018
  Receipt Date: 20241018
  Transmission Date: 20250115
  Serious: No
  Sender: ROCHE
  Company Number: US-ROCHE-3576007

PATIENT
  Age: 71 Year
  Sex: Female

DRUGS (2)
  1. RITUXAN [Suspect]
     Active Substance: RITUXIMAB
     Indication: Mantle cell lymphoma
     Dosage: DATE OF TREATMENT: 28/NOV/2022, 27DEC/2022, 23/JAN/2023, 20/FEB/2023, 27/MAR/2023, 24/APR/2024.
     Route: 042
     Dates: start: 202211
  2. AVASTIN [Suspect]
     Active Substance: BEVACIZUMAB
     Indication: Cerebrovascular disorder
     Route: 065
     Dates: start: 2020, end: 202101

REACTIONS (2)
  - Device material opacification [Not Recovered/Not Resolved]
  - Off label use [Unknown]

NARRATIVE: CASE EVENT DATE: 20200101
